FAERS Safety Report 5761977-5 (Version None)
Quarter: 2008Q2

REPORT INFORMATION
  Report Type: 
  Country: None (occurrence: None)
  Receive Date: 20080603
  Receipt Date: 20080528
  Transmission Date: 20081010
  Serious: Yes (Death, Hospitalization)
  Sender: FDA-Public Use
  Company Number: CLOF-1000175

PATIENT
  Age: 60 Year
  Sex: Female
  Weight: 108.5 kg

DRUGS (7)
  1. CLOFARABINE          (CLOFARABINE) [Suspect]
     Indication: STEM CELL TRANSPLANT
     Dosage: 84 MG, QDX5, INTRAVENOUS
     Route: 042
     Dates: start: 20080509, end: 20080513
  2. CAMPATH [Suspect]
     Indication: STEM CELL TRANSPLANT
     Dosage: 20 MG, QDX5, INTRAVENOUS
     Route: 042
     Dates: start: 20080509, end: 20080513
  3. MELPHALAN (MELPHALAN) [Suspect]
     Indication: STEM CELL TRANSPLANT
     Dosage: 290 MG, ONCE, INTRAVENOUS
     Route: 042
     Dates: start: 20080514, end: 20080514
  4. ZOFRAN [Concomitant]
  5. ZOLOFT [Concomitant]
  6. INDERAL [Concomitant]
  7. METHADONE HCL [Concomitant]

REACTIONS (19)
  - ABDOMINAL PAIN [None]
  - ASCITES [None]
  - ASPIRATION [None]
  - BLOOD CREATININE INCREASED [None]
  - CARDIO-RESPIRATORY ARREST [None]
  - DRUG TOXICITY [None]
  - FLUID OVERLOAD [None]
  - HALLUCINATION [None]
  - HYPERVOLAEMIA [None]
  - HYPOTENSION [None]
  - NAUSEA [None]
  - PAIN [None]
  - PULMONARY EMBOLISM [None]
  - PULMONARY OEDEMA [None]
  - RESPIRATORY DISTRESS [None]
  - SEDATION [None]
  - SEPSIS [None]
  - SPINAL OSTEOARTHRITIS [None]
  - URINE OUTPUT DECREASED [None]
